FAERS Safety Report 9470540 (Version 2)
Quarter: 2014Q1

REPORT INFORMATION
  Report Type: Spontaneous
  Country: US (occurrence: US)
  Receive Date: 20130822
  Receipt Date: 20140106
  Transmission Date: 20141002
  Serious: Yes (Death, Hospitalization)
  Sender: FDA-Public Use
  Company Number: US-INCYTE CORPORATION-2013IN001870

PATIENT
  Sex: Female

DRUGS (2)
  1. JAKAFI [Suspect]
     Indication: MYELOFIBROSIS
     Dosage: 5 MG, BID
     Route: 048
     Dates: start: 20120608
  2. JAKAFI [Suspect]
     Dosage: 10 MG, BID
     Route: 048

REACTIONS (4)
  - Death [Fatal]
  - Laboratory test abnormal [Unknown]
  - Malaise [Unknown]
  - Fatigue [Unknown]
